FAERS Safety Report 18044174 (Version 1)
Quarter: 2020Q3

REPORT INFORMATION
  Report Type: Report from Study
  Country: EG (occurrence: EG)
  Receive Date: 20200720
  Receipt Date: 20200720
  Transmission Date: 20201103
  Serious: Yes (Other)
  Sender: FDA-Public Use
  Company Number: NVSC2020EG197156

PATIENT
  Sex: Female

DRUGS (1)
  1. TASIGNA [Suspect]
     Active Substance: NILOTINIB
     Indication: CHRONIC MYELOID LEUKAEMIA
     Dosage: 600 MG, QD (STARTED AT TWO YEARS AGO)
     Route: 048

REACTIONS (7)
  - Thrombocytopenia [Recovered/Resolved]
  - Haemorrhage [Recovered/Resolved]
  - Haemoglobin abnormal [Recovering/Resolving]
  - Syncope [Recovered/Resolved]
  - Nasopharyngitis [Recovering/Resolving]
  - Oropharyngeal pain [Recovering/Resolving]
  - Sneezing [Recovering/Resolving]

NARRATIVE: CASE EVENT DATE: 2019
